FAERS Safety Report 4834807-3 (Version None)
Quarter: 2005Q4

REPORT INFORMATION
  Report Type: 
  Country: None (occurrence: None)
  Receive Date: 20051122
  Receipt Date: 20050318
  Transmission Date: 20060501
  Serious: Yes (Death)
  Sender: FDA-Public Use
  Company Number: NL-BRISTOL-MYERS SQUIBB COMPANY-12903738

PATIENT
  Age: 43 Year
  Sex: Female

DRUGS (4)
  1. PACLITAXEL [Suspect]
     Indication: BREAST CANCER METASTATIC
     Route: 042
     Dates: start: 20050228, end: 20050228
  2. FRAXIPARINE [Concomitant]
     Indication: PULMONARY EMBOLISM
     Dates: start: 20050206, end: 20050308
  3. ACETAMINOPHEN [Concomitant]
  4. TAMOXIFEN [Concomitant]
     Dates: end: 20050210

REACTIONS (6)
  - ADVERSE DRUG REACTION [None]
  - DISSEMINATED INTRAVASCULAR COAGULATION [None]
  - GENERAL PHYSICAL HEALTH DETERIORATION [None]
  - INTESTINAL ISCHAEMIA [None]
  - MULTI-ORGAN FAILURE [None]
  - SEPTIC SHOCK [None]
